FAERS Safety Report 10471398 (Version 2)
Quarter: 2014Q4

REPORT INFORMATION
  Report Type: Spontaneous
  Country: BR (occurrence: BR)
  Receive Date: 20140923
  Receipt Date: 20141104
  Transmission Date: 20150528
  Serious: Yes (Hospitalization, Other)
  Sender: FDA-Public Use
  Company Number: BR-PFIZER INC-2014260236

PATIENT
  Sex: Female
  Weight: 97 kg

DRUGS (8)
  1. ATENOLOL. [Suspect]
     Active Substance: ATENOLOL
     Indication: CARDIAC DISORDER
     Dosage: 25 MG, UNK
     Route: 048
  2. MERITOR [Suspect]
     Active Substance: GLIMEPIRIDE\METFORMIN
     Dosage: 2/100 MG AT NIGHT
     Route: 048
     Dates: start: 20140912
  3. OSTEONUTRI [Concomitant]
     Indication: OTOSCLEROSIS
     Dosage: UNK
     Route: 048
     Dates: start: 2009
  4. MERITOR [Suspect]
     Active Substance: GLIMEPIRIDE\METFORMIN
     Indication: DIABETES MELLITUS
     Dosage: UNK
     Route: 048
  5. MONALESS [Concomitant]
     Indication: BLOOD CHOLESTEROL INCREASED
     Dosage: UNK
     Route: 048
     Dates: start: 2009
  6. MERITOR [Suspect]
     Active Substance: GLIMEPIRIDE\METFORMIN
     Dosage: 4/100 MG EVERY MORNING
     Route: 048
  7. ONGLYZA [Suspect]
     Active Substance: SAXAGLIPTIN HYDROCHLORIDE
     Indication: DIABETES MELLITUS
     Dosage: 5 MG, DAILY
     Route: 048
     Dates: start: 2012
  8. ASPIRINA [Concomitant]
     Active Substance: ASPIRIN
     Indication: BLOOD CHOLESTEROL INCREASED
     Dosage: UNK
     Route: 048

REACTIONS (3)
  - Arterial occlusive disease [Recovered/Resolved]
  - Otosclerosis [Recovered/Resolved with Sequelae]
  - Deafness unilateral [Not Recovered/Not Resolved]

NARRATIVE: CASE EVENT DATE: 2009
